FAERS Safety Report 11247156 (Version 1)
Quarter: 2015Q3

REPORT INFORMATION
  Report Type: Spontaneous
  Country: US (occurrence: US)
  Receive Date: 20150708
  Receipt Date: 20150708
  Transmission Date: 20151125
  Serious: No
  Sender: FDA-Public Use
  Company Number: US-PFIZER INC-2015223576

PATIENT
  Age: 63 Year
  Sex: Male
  Weight: 77 kg

DRUGS (2)
  1. IBUPROFEN. [Suspect]
     Active Substance: IBUPROFEN
     Indication: PROCEDURAL PAIN
     Dosage: UNK
     Dates: start: 1990
  2. IBUPROFEN. [Suspect]
     Active Substance: IBUPROFEN
     Dosage: 800 MG (FOUR 200 MG TABLETS EVERY 8 HOURS )
     Dates: start: 201408

REACTIONS (3)
  - Drug ineffective [Unknown]
  - Abdominal discomfort [Unknown]
  - Dyspepsia [Unknown]

NARRATIVE: CASE EVENT DATE: 201506
